FAERS Safety Report 4608264-6 (Version None)
Quarter: 2005Q2

REPORT INFORMATION
  Report Type: 
  Country: None (occurrence: None)
  Receive Date: 20050303
  Receipt Date: 20041130
  Transmission Date: 20051028
  Serious: No
  Sender: FDA-Public Use
  Company Number: 2004BI000837

PATIENT
  Age: 64 Year
  Sex: Female

DRUGS (5)
  1. AMEVIVE [Suspect]
     Indication: PSORIASIS
     Dosage: 15 MG; QW; IM
     Route: 030
     Dates: start: 20040909, end: 20041007
  2. REMICADE [Concomitant]
  3. METHOTREXATE [Concomitant]
  4. PREDNISONE [Concomitant]
  5. TRIAMCINOLONE [Concomitant]

REACTIONS (1)
  - CD4 LYMPHOCYTES DECREASED [None]
